FAERS Safety Report 8340151-2 (Version None)
Quarter: 2012Q2

REPORT INFORMATION
  Report Type: 
  Country: None (occurrence: None)
  Receive Date: 20120507
  Receipt Date: 20120302
  Transmission Date: 20120825
  Serious: No
  Sender: FDA-Public Use
  Company Number: US-ASTRAZENECA-2012SE14994

PATIENT
  Sex: Female

DRUGS (1)
  1. VIMOVO [Suspect]
     Indication: BACK PAIN
     Route: 048
     Dates: start: 20120101

REACTIONS (2)
  - DRUG PRESCRIBING ERROR [None]
  - ABDOMINAL DISCOMFORT [None]
